FAERS Safety Report 4822676-7 (Version None)
Quarter: 2005Q4

REPORT INFORMATION
  Report Type: 
  Country: None (occurrence: None)
  Receive Date: 20051108
  Receipt Date: 20050714
  Transmission Date: 20060501
  Serious: Yes (Other)
  Sender: FDA-Public Use
  Company Number: GB-GLAXOSMITHKLINE-B0388407A

PATIENT
  Age: 32 Year
  Sex: Female

DRUGS (9)
  1. PAROXETINE HCL [Suspect]
     Dosage: 50MG PER DAY
  2. SULPIRIDE [Suspect]
  3. FLUOXETINE [Suspect]
  4. CLOZAPINE [Suspect]
  5. OLANZAPINE [Suspect]
     Indication: SCHIZOPHRENIA, PARANOID TYPE
     Dosage: 15MG PER DAY
     Route: 048
  6. FLUPENTHIXOL [Concomitant]
  7. ZOPICLONE [Concomitant]
  8. CITALOPRAM [Concomitant]
  9. CLONAZEPAM [Concomitant]

REACTIONS (14)
  - DEPRESSION [None]
  - DIZZINESS [None]
  - DRUG INTERACTION [None]
  - FATIGUE [None]
  - GRAND MAL CONVULSION [None]
  - HALLUCINATION, AUDITORY [None]
  - INCONTINENCE [None]
  - MENTAL IMPAIRMENT [None]
  - ORTHOSTATIC HYPOTENSION [None]
  - PERSECUTORY DELUSION [None]
  - SALIVARY HYPERSECRETION [None]
  - SCHIZOPHRENIA [None]
  - SYNCOPE VASOVAGAL [None]
  - TONGUE BITING [None]
